FAERS Safety Report 5942495-8 (Version None)
Quarter: 2008Q4

REPORT INFORMATION
  Report Type: 
  Country: None (occurrence: None)
  Receive Date: 20081105
  Receipt Date: 20081024
  Transmission Date: 20090506
  Serious: Yes (Other)
  Sender: FDA-Public Use
  Company Number: DE-PFIZER INC-2008085284

PATIENT
  Sex: Male
  Weight: 116 kg

DRUGS (5)
  1. FRAGMIN P FORTE [Suspect]
     Indication: THROMBOSIS PROPHYLAXIS
     Dosage: TEXT:UNIT DOSE: 2500/U - TDD: 2500/U
     Route: 058
  2. SUTENT [Suspect]
     Indication: METASTATIC RENAL CELL CARCINOMA
     Dosage: DAILY DOSE:50MG
     Route: 048
     Dates: start: 20080706, end: 20080803
  3. BOSENTAN [Concomitant]
     Route: 048
     Dates: start: 20080706
  4. FENTANYL [Concomitant]
  5. ALLOPURINOL [Concomitant]
     Route: 048
     Dates: start: 20080701

REACTIONS (3)
  - CONDITION AGGRAVATED [None]
  - LEUKOPENIA [None]
  - THROMBOCYTOPENIA [None]
